FAERS Safety Report 16006397 (Version 5)
Quarter: 2024Q1

REPORT INFORMATION
  Report Type: Spontaneous
  Country: US (occurrence: US)
  Receive Date: 20190225
  Receipt Date: 20240108
  Transmission Date: 20240410
  Serious: No
  Sender: FDA-Public Use
  Company Number: US-PFIZER INC-2019030492

PATIENT
  Age: 76 Year
  Sex: Female
  Weight: 74.83 kg

DRUGS (4)
  1. XELJANZ XR [Suspect]
     Active Substance: TOFACITINIB CITRATE
     Indication: Rheumatoid arthritis
     Dosage: 11 MG, 1X/DAY
     Route: 048
  2. ERGOCALCIFEROL [Concomitant]
     Active Substance: ERGOCALCIFEROL
  3. ALOE [ALOE SPP.] [Concomitant]
  4. COBAMAMIDE [Concomitant]
     Active Substance: COBAMAMIDE

REACTIONS (4)
  - Bronchitis viral [Recovering/Resolving]
  - Weight increased [Unknown]
  - Pain [Unknown]
  - Drug ineffective [Unknown]

NARRATIVE: CASE EVENT DATE: 20190131
